FAERS Safety Report 23746780 (Version 1)
Quarter: 2024Q2

REPORT INFORMATION
  Report Type: Spontaneous
  Country: US (occurrence: US)
  Receive Date: 20240416
  Receipt Date: 20240416
  Transmission Date: 20240716
  Serious: Yes (Other)
  Sender: FDA-Public Use
  Company Number: US-TEVA-VS-3159131

PATIENT
  Age: 74 Year
  Sex: Female

DRUGS (1)
  1. ALBUTEROL SULFATE [Suspect]
     Active Substance: ALBUTEROL SULFATE
     Indication: Dyspnoea
     Dosage: 90 MCG/DOSE, 2 PUFFS 4 TIMES DAILY
     Route: 055

REACTIONS (12)
  - Pneumonia [Unknown]
  - Tremor [Unknown]
  - Nervousness [Unknown]
  - Inappropriate schedule of product administration [Unknown]
  - Headache [Unknown]
  - Nasal congestion [Unknown]
  - Product use in unapproved indication [Unknown]
  - Sleep apnoea syndrome [Unknown]
  - Dizziness [Unknown]
  - Nasal congestion [Unknown]
  - Oxygen saturation decreased [Unknown]
  - Adenoiditis [Unknown]
